FAERS Safety Report 6817263-5 (Version None)
Quarter: 2010Q3

REPORT INFORMATION
  Report Type: 
  Country: None (occurrence: None)
  Receive Date: 20100706
  Receipt Date: 20100624
  Transmission Date: 20110219
  Serious: Yes (Hospitalization)
  Sender: FDA-Public Use
  Company Number: DE-ROCHE-711787

PATIENT
  Age: 51 Year
  Sex: Female
  Weight: 65 kg

DRUGS (11)
  1. CELLCEPT [Suspect]
     Route: 048
     Dates: start: 20070701
  2. CELLCEPT [Suspect]
     Route: 048
     Dates: start: 20100608
  3. PROGRAF [Suspect]
     Dosage: NUMBER OF SEPARATE DOSES: 2
     Route: 048
     Dates: start: 20070701
  4. AVELOX [Suspect]
     Indication: BRONCHITIS
     Dosage: FORM: FILM-COATED TABLET
     Route: 048
     Dates: start: 20100607, end: 20100607
  5. RAMIPRIL [Concomitant]
     Route: 048
     Dates: start: 20050101
  6. THYRONAJOD [Concomitant]
     Indication: HYPOTHYROIDISM
     Route: 048
     Dates: start: 20050101
  7. LOCOL [Concomitant]
     Indication: HYPERLIPIDAEMIA
     Route: 048
     Dates: start: 20070101
  8. PANTOZOL [Concomitant]
     Indication: PROPHYLAXIS
     Route: 048
     Dates: start: 20070101
  9. VIANI [Concomitant]
     Indication: ASTHMA
     Dosage: DRUG: VIANI FORTE DISKUS, FORM: INHALATION POWDER
     Route: 058
  10. DEKRISTOL [Concomitant]
     Indication: OSTEOPOROSIS
     Route: 048
     Dates: start: 20080101
  11. MOXIFLOXACIN [Concomitant]
     Indication: BRONCHITIS
     Dates: start: 20090101, end: 20090101

REACTIONS (2)
  - BRONCHITIS [None]
  - DRUG INTOLERANCE [None]
